FAERS Safety Report 10554258 (Version 3)
Quarter: 2015Q4

REPORT INFORMATION
  Report Type: Report from Study
  Country: CA (occurrence: CA)
  Receive Date: 20141030
  Receipt Date: 20151005
  Transmission Date: 20160304
  Serious: Yes (Hospitalization, Other)
  Sender: FDA-Public Use
  Company Number: CA-GSKJP-KK201413124GSK1550188SC003

PATIENT
  Age: 54 Year
  Sex: Female
  Weight: 96 kg

DRUGS (3)
  1. BELIMUMAB [Suspect]
     Active Substance: BELIMUMAB
     Indication: SYSTEMIC LUPUS ERYTHEMATOSUS
     Dosage: 10MG/KG WEEK 0, 2, 4 THEN EVERY 4 WEEKS
     Route: 042
     Dates: start: 20120214
  2. ASA [Concomitant]
     Active Substance: ASPIRIN
     Indication: PRODUCT USED FOR UNKNOWN INDICATION
     Dosage: 81 MG, UNK
  3. BELIMUMAB [Suspect]
     Active Substance: BELIMUMAB
     Dosage: 900 MG Q4 WEEKS

REACTIONS (8)
  - Chest pain [Recovered/Resolved]
  - Arthrodesis [Recovered/Resolved]
  - Fatigue [Recovered/Resolved]
  - Nausea [Recovered/Resolved]
  - Abdominal pain [Recovered/Resolved]
  - Chills [Recovered/Resolved]
  - Weight decreased [Unknown]
  - Urticaria [Unknown]

NARRATIVE: CASE EVENT DATE: 20120214
